FAERS Safety Report 6760362-7 (Version None)
Quarter: 2010Q2

REPORT INFORMATION
  Report Type: 
  Country: None (occurrence: None)
  Receive Date: 20100608
  Receipt Date: 20100526
  Transmission Date: 20101027
  Serious: Yes (Life-Threatening)
  Sender: FDA-Public Use
  Company Number: US-GENZYME-POMP-1000950

PATIENT
  Sex: Female
  Weight: 9.8 kg

DRUGS (3)
  1. MYOZYME [Suspect]
     Indication: GLYCOGEN STORAGE DISEASE TYPE II
     Dosage: 20 MG/KG, QOW
     Route: 042
     Dates: start: 20100419
  2. TYLENOL [Concomitant]
     Indication: PREMEDICATION
  3. BENADRYL [Concomitant]
     Indication: PREMEDICATION

REACTIONS (3)
  - APNOEA [None]
  - ERYTHEMA [None]
  - RASH ERYTHEMATOUS [None]
